FAERS Safety Report 5744971-X (Version None)
Quarter: 2008Q2

REPORT INFORMATION
  Report Type: 
  Country: None (occurrence: None)
  Receive Date: 20080521
  Receipt Date: 20080513
  Transmission Date: 20081010
  Serious: Yes (Other)
  Sender: FDA-Public Use
  Company Number: GB-BAYER-200811290BNE

PATIENT
  Sex: Female

DRUGS (1)
  1. MIRENA [Suspect]
     Indication: DRUG USE FOR UNKNOWN INDICATION
     Route: 015
     Dates: start: 20070604, end: 20070101

REACTIONS (3)
  - ABDOMINAL ADHESIONS [None]
  - GASTRIC DISORDER [None]
  - HAEMORRHAGIC OVARIAN CYST [None]
